FAERS Safety Report 5143757-7 (Version None)
Quarter: 2006Q4

REPORT INFORMATION
  Report Type: 
  Country: None (occurrence: None)
  Receive Date: 20061106
  Receipt Date: 20061024
  Transmission Date: 20070319
  Serious: Yes (Hospitalization, Other)
  Sender: FDA-Public Use
  Company Number: ES-JNJFOC-20060101970

PATIENT
  Age: 48 Year
  Sex: Female
  Weight: 66 kg

DRUGS (2)
  1. REMICADE [Suspect]
     Indication: CROHN'S DISEASE
     Dosage: 3-4 MONTHS DURATION; RECEIVED 10 INFUSIONS
     Route: 042
  2. IMUREL [Concomitant]

REACTIONS (3)
  - DISSEMINATED TUBERCULOSIS [None]
  - MENINGITIS TUBERCULOUS [None]
  - PYREXIA [None]
